FAERS Safety Report 10216201 (Version 4)
Quarter: 2018Q4

REPORT INFORMATION
  Report Type: Spontaneous
  Country: JP (occurrence: JP)
  Receive Date: 20140604
  Receipt Date: 20181119
  Transmission Date: 20190204
  Serious: Yes (Hospitalization)
  Sender: FDA-Public Use
  Company Number: JP-FRI-1000067816

PATIENT
  Age: 17 Year
  Sex: Female

DRUGS (2)
  1. RONLAX [Concomitant]
     Active Substance: ETHYL LOFLAZEPATE
     Indication: DEPRESSION
     Dosage: 4 DF, UNK
     Route: 048
  2. ESCITALOPRAM OXALATE - BP [Suspect]
     Active Substance: ESCITALOPRAM OXALATE
     Indication: DEPRESSION
     Dosage: 750 MG, QD; 75 TABLETS
     Route: 048

REACTIONS (11)
  - Tremor [Recovered/Resolved]
  - Electrocardiogram QT prolonged [Recovered/Resolved]
  - Somnolence [Recovered/Resolved]
  - Vomiting [Unknown]
  - Altered state of consciousness [Recovered/Resolved]
  - Overdose [Recovered/Resolved]
  - Nausea [Recovered/Resolved]
  - Product use issue [Unknown]
  - Toxicity to various agents [Recovered/Resolved]
  - Suicide attempt [Recovered/Resolved]
  - Tetany [Unknown]

NARRATIVE: CASE EVENT DATE: 20140523
